FAERS Safety Report 20906446 (Version 1)
Quarter: 2022Q2

REPORT INFORMATION
  Report Type: Spontaneous
  Country: RU (occurrence: RU)
  Receive Date: 20220602
  Receipt Date: 20220602
  Transmission Date: 20220720
  Serious: Yes (Hospitalization)
  Sender: FDA-Public Use
  Company Number: RU-VERTEX PHARMACEUTICALS-2022-008388

PATIENT

DRUGS (1)
  1. ORKAMBI [Suspect]
     Active Substance: IVACAFTOR\LUMACAFTOR
     Indication: Cystic fibrosis
     Dosage: 2 DOSAGE FORM (200 MG/125 MG), BID
     Route: 048
     Dates: start: 2021

REACTIONS (1)
  - Bronchospasm [Unknown]
